FAERS Safety Report 9421858 (Version 1)
Quarter: 2013Q3

REPORT INFORMATION
  Report Type: Spontaneous
  Country: US (occurrence: None)
  Receive Date: 20130724
  Receipt Date: 20130724
  Transmission Date: 20140515
  Serious: Yes (Hospitalization)
  Sender: FDA-Public Use
  Company Number: None

PATIENT
  Age: 64 Year
  Sex: Male
  Weight: 108.7 kg

DRUGS (18)
  1. DIGOXIN [Suspect]
     Indication: ATRIAL FIBRILLATION
     Route: 048
     Dates: start: 201211, end: 20130214
  2. LASIX [Concomitant]
  3. COREG [Concomitant]
  4. ALBUTEROL [Concomitant]
  5. SIMVASTATIN [Concomitant]
  6. MSCONTIN [Concomitant]
  7. NOREO [Concomitant]
  8. ADVAIR [Concomitant]
  9. GABAPENTIN [Concomitant]
  10. TAMSULOSIN [Concomitant]
  11. ROPINIROLE [Concomitant]
  12. HUMULIN R [Concomitant]
  13. PLAVIX [Concomitant]
  14. LISINOPRIL [Concomitant]
  15. PROTONIX [Concomitant]
  16. NICODERM [Concomitant]
  17. LACTOBECILUS [Concomitant]
  18. IPATROPIUM [Concomitant]

REACTIONS (1)
  - Renal failure acute [None]
